FAERS Safety Report 7631236-4 (Version None)
Quarter: 2011Q3

REPORT INFORMATION
  Report Type: 
  Country: None (occurrence: None)
  Receive Date: 20110715
  Receipt Date: 20110707
  Transmission Date: 20111222
  Serious: Yes (Death)
  Sender: FDA-Public Use
  Company Number: DKLU1071799

PATIENT
  Age: 6 Year
  Sex: Female
  Weight: 22 kg

DRUGS (6)
  1. KEPPRA [Concomitant]
  2. DILANTIN [Concomitant]
  3. KLONOPIN [Concomitant]
  4. SABRIL [Suspect]
     Indication: EPILEPSY
     Dosage: 2000 MG MILLIGRAM(S), 1 IN 1 D), ORAL
     Route: 048
  5. DEPAKOTE [Concomitant]
  6. TRILEPTAL [Concomitant]

REACTIONS (1)
  - DEATH [None]
